FAERS Safety Report 11435669 (Version 4)
Quarter: 2015Q3

REPORT INFORMATION
  Report Type: Spontaneous
  Country: US (occurrence: US)
  Receive Date: 20150831
  Receipt Date: 20150922
  Transmission Date: 20151125
  Serious: Yes (Hospitalization)
  Sender: FDA-Public Use
  Company Number: US-UNITED THERAPEUTICS-UNT-2015-010020

PATIENT
  Age: 44 Year
  Sex: Female
  Weight: 109.75 kg

DRUGS (4)
  1. REMODULIN [Suspect]
     Active Substance: TREPROSTINIL
     Dosage: 0.029 ?G/KG, CONTINUING
     Route: 041
     Dates: start: 20150908
  2. REMODULIN [Suspect]
     Active Substance: TREPROSTINIL
     Dosage: 0.029 ?G/KG, CONTINUING
     Route: 058
  3. REVATIO [Suspect]
     Active Substance: SILDENAFIL CITRATE
     Indication: PRODUCT USED FOR UNKNOWN INDICATION
     Dosage: 2 TAB, BID
     Route: 048
  4. REMODULIN [Suspect]
     Active Substance: TREPROSTINIL
     Indication: PULMONARY ARTERIAL HYPERTENSION
     Dosage: 0.025 ?G/KG, CONTINUING
     Route: 058
     Dates: start: 20140923

REACTIONS (18)
  - Chest pain [Not Recovered/Not Resolved]
  - Pain [Unknown]
  - Cardiac disorder [Not Recovered/Not Resolved]
  - Infusion site pain [Unknown]
  - Hypersensitivity [Unknown]
  - Nausea [Unknown]
  - Rash [Unknown]
  - Alopecia [Unknown]
  - Chills [Unknown]
  - Pulmonary arterial hypertension [Unknown]
  - Infusion site infection [Unknown]
  - Drug dose omission [Unknown]
  - Device dislocation [Unknown]
  - Infusion site discharge [Unknown]
  - Infusion site haemorrhage [Unknown]
  - Feeling of body temperature change [Unknown]
  - Visual impairment [Recovered/Resolved]
  - Infusion site induration [Unknown]

NARRATIVE: CASE EVENT DATE: 2015
